FAERS Safety Report 7361217-X (Version None)
Quarter: 2011Q1

REPORT INFORMATION
  Report Type: 
  Country: None (occurrence: None)
  Receive Date: 20110318
  Receipt Date: 20110223
  Transmission Date: 20110831
  Serious: No
  Sender: FDA-Public Use
  Company Number: US-BAYER-2011-018444

PATIENT
  Sex: Female
  Weight: 68 kg

DRUGS (3)
  1. UNCODEABLE ^UNCLASSIFIABLE^ [Concomitant]
  2. ALEVE (CAPLET) [Suspect]
     Dosage: 4 DF, BID
     Route: 048
     Dates: start: 20110222
  3. UNCODEABLE ^UNCLASSIFIABLE^ [Concomitant]

REACTIONS (1)
  - COUGH [None]
